FAERS Safety Report 16858774 (Version 3)
Quarter: 2020Q1

REPORT INFORMATION
  Report Type: Spontaneous
  Country: US (occurrence: US)
  Receive Date: 20190926
  Receipt Date: 20200108
  Transmission Date: 20200409
  Serious: Yes (Hospitalization, Other)
  Sender: FDA-Public Use
  Company Number: US-PFIZER INC-2019414804

PATIENT
  Age: 79 Year
  Sex: Female

DRUGS (1)
  1. IBRANCE [Suspect]
     Active Substance: PALBOCICLIB
     Indication: BREAST CANCER METASTATIC
     Dosage: 10MG TWICE A DAY
     Dates: start: 201904, end: 2019

REACTIONS (10)
  - Decreased appetite [Unknown]
  - Traumatic lung injury [Unknown]
  - Impaired quality of life [Unknown]
  - Off label use [Unknown]
  - Neoplasm progression [Unknown]
  - Asthenia [Unknown]
  - Pericardial effusion [Not Recovered/Not Resolved]
  - Dyspnoea [Unknown]
  - Gastrointestinal disorder [Not Recovered/Not Resolved]
  - Weight decreased [Not Recovered/Not Resolved]

NARRATIVE: CASE EVENT DATE: 2019
